FAERS Safety Report 9098730 (Version 1)
Quarter: 2013Q1

REPORT INFORMATION
  Report Type: Spontaneous
  Country: FR (occurrence: FR)
  Receive Date: 20130213
  Receipt Date: 20130213
  Transmission Date: 20140127
  Serious: Yes (Hospitalization)
  Sender: FDA-Public Use
  Company Number: FR-PFIZER INC-2013050116

PATIENT
  Age: 81 Year
  Sex: Female

DRUGS (10)
  1. SULBACTAM/ AMPICILLIN [Suspect]
     Indication: ACINETOBACTER INFECTION
     Dosage: 2 G, 3X/DAY
     Route: 042
     Dates: start: 20121205
  2. COLIMYCINE [Suspect]
     Indication: ACINETOBACTER INFECTION
     Dosage: 4.5 MILLIONIU, 2X/DAY
     Route: 042
     Dates: start: 20121203
  3. MEROPENEM [Suspect]
     Indication: ACINETOBACTER INFECTION
     Dosage: 2 G, 3X/DAY
     Route: 042
     Dates: start: 20121204
  4. LIPANTHYL [Concomitant]
  5. DIFFU K [Concomitant]
  6. TARDYFERON [Concomitant]
  7. ZOPICLONE [Concomitant]
  8. MIANSERIN [Concomitant]
  9. TEMESTA [Concomitant]
  10. LOVENOX [Concomitant]

REACTIONS (2)
  - Rash [Recovered/Resolved]
  - Rash erythematous [Recovered/Resolved]
